FAERS Safety Report 10176566 (Version 1)
Quarter: 2014Q2

REPORT INFORMATION
  Report Type: Spontaneous
  Country: US (occurrence: US)
  Receive Date: 20140516
  Receipt Date: 20140516
  Transmission Date: 20141212
  Serious: Yes (Other)
  Sender: FDA-Public Use
  Company Number: US-BAYER-2014-069130

PATIENT
  Age: 30 Year
  Sex: Female

DRUGS (2)
  1. MIRENA [Suspect]
     Indication: MENORRHAGIA
     Dosage: 20 ?G/D, CONT
     Route: 015
     Dates: start: 2012
  2. MIRENA [Suspect]
     Indication: CONTRACEPTION

REACTIONS (7)
  - Amenorrhoea [None]
  - Ovarian cyst [None]
  - Abdominal pain [None]
  - Genital haemorrhage [None]
  - Metrorrhagia [None]
  - Menorrhagia [None]
  - Drug ineffective [None]
